FAERS Safety Report 21456448 (Version 1)
Quarter: 2022Q4

REPORT INFORMATION
  Report Type: Spontaneous
  Country: FR (occurrence: FR)
  Receive Date: 20221014
  Receipt Date: 20221014
  Transmission Date: 20230113
  Serious: Yes (Other)
  Sender: FDA-Public Use
  Company Number: ALC2020FR011070

PATIENT

DRUGS (5)
  1. ATROPINE [Suspect]
     Active Substance: ATROPINE
     Indication: Toxicity to various agents
     Dosage: 10 MG
     Route: 065
  2. METOCLOPRAMIDE [Suspect]
     Active Substance: METOCLOPRAMIDE
     Indication: Toxicity to various agents
     Dosage: 10 MG
     Route: 065
  3. FONDAPARINUX SODIUM [Suspect]
     Active Substance: FONDAPARINUX SODIUM
     Indication: Toxicity to various agents
     Dosage: 0.5 MG
     Route: 065
  4. DIGIFAB [Suspect]
     Active Substance: OVINE DIGOXIN IMMUNE FAB
     Indication: Toxicity to various agents
     Dosage: 160 MG
     Route: 065
  5. CHARCOAL ACTIVATED [Suspect]
     Active Substance: ACTIVATED CHARCOAL
     Indication: Toxicity to various agents
     Dosage: 50 G
     Route: 065

REACTIONS (3)
  - Thrombocytopenia [Recovered/Resolved]
  - Off label use [Unknown]
  - Bradycardia [Recovered/Resolved]
